FAERS Safety Report 7999369 (Version 2)
Quarter: 2012Q4

REPORT INFORMATION
  Report Type: 
  Country: US (occurrence: US)
  Receive Date: 20110621
  Receipt Date: 20120904
  Transmission Date: 20130627
  Serious: Yes (Death)
  Sender: FDA-Public Use
  Company Number: US-MYLANLABS-2011S1012183

PATIENT
  Age: 43 Year
  Sex: Female
  Weight: 81.65 kg

DRUGS (9)
  1. FENTANYL TRANSDERMAL SYSTEM [Suspect]
     Indication: BACK PAIN
     Dosage: q48hr
     Route: 062
     Dates: end: 20091009
  2. FENTANYL TRANSDERMAL SYSTEM [Suspect]
     Indication: BACK PAIN
     Dosage: q 48 hrs
     Route: 062
     Dates: end: 20091009
  3. AMITRIPTYLINE [Suspect]
     Indication: INSOMNIA
  4. LEVOTHYROXINE [Concomitant]
  5. TOPIRAMATE [Concomitant]
  6. ESSIAN [Concomitant]
  7. LYRICA [Concomitant]
  8. CYCLOBENZAPRINE [Concomitant]
  9. DIPHENHYDRAMINE [Concomitant]

REACTIONS (4)
  - Toxicity to various agents [Fatal]
  - Overdose [Fatal]
  - Cardio-respiratory arrest [Fatal]
  - Toxicity to various agents [None]
